FAERS Safety Report 7247983-2 (Version None)
Quarter: 2011Q1

REPORT INFORMATION
  Report Type: 
  Country: None (occurrence: None)
  Receive Date: 20110127
  Receipt Date: 20110124
  Transmission Date: 20110831
  Serious: Yes (Other)
  Sender: FDA-Public Use
  Company Number: US-PFIZER INC-2011015887

PATIENT
  Sex: Female

DRUGS (5)
  1. GEODON [Suspect]
     Dosage: UNK
  2. MULTI-VITAMINS [Concomitant]
     Dosage: UNK
  3. GEODON [Suspect]
     Dosage: 4 MG, DAILY
     Route: 048
     Dates: start: 20110101
  4. KLONOPIN [Concomitant]
     Indication: ANXIETY
     Dosage: 2 MG, 2X/DAY
     Route: 048
  5. PRISTIQ [Concomitant]
     Indication: DEPRESSION
     Dosage: 50 MG, DAILY
     Route: 048

REACTIONS (5)
  - PARAESTHESIA [None]
  - FALL [None]
  - GAIT DISTURBANCE [None]
  - HYPOAESTHESIA [None]
  - MUSCULAR WEAKNESS [None]
